FAERS Safety Report 24615237 (Version 5)
Quarter: 2024Q4

REPORT INFORMATION
  Report Type: Spontaneous
  Country: US (occurrence: US)
  Receive Date: 20241113
  Receipt Date: 20241209
  Transmission Date: 20250114
  Serious: No
  Sender: SANOFI AVENTIS
  Company Number: US-SA-2024SA316660

PATIENT
  Age: 45 Year
  Sex: Female

DRUGS (2)
  1. APIDRA SOLOSTAR [Suspect]
     Active Substance: INSULIN GLULISINE
     Indication: Diabetes mellitus
     Dosage: 2-3 UNITS AT A TIME
     Route: 065
  2. APIDRA SOLOSTAR [Suspect]
     Active Substance: INSULIN GLULISINE
     Dosage: 1-4 UNITS, PRN
     Route: 065

REACTIONS (5)
  - Blood glucose decreased [Unknown]
  - Extra dose administered [Unknown]
  - Device defective [Unknown]
  - Intentional product misuse [Unknown]
  - Off label use [Unknown]
